FAERS Safety Report 19984752 (Version 2)
Quarter: 2021Q4

REPORT INFORMATION
  Report Type: Spontaneous
  Country: US (occurrence: US)
  Receive Date: 20211022
  Receipt Date: 20211029
  Transmission Date: 20220303
  Serious: Yes (Life-Threatening, Hospitalization, Other)
  Sender: FDA-Public Use
  Company Number: US-TORRENT-00011297

PATIENT
  Age: 72 Year
  Sex: Male

DRUGS (1)
  1. PIOGLITAZONE [Suspect]
     Active Substance: PIOGLITAZONE
     Indication: Type 2 diabetes mellitus
     Dosage: FOR THE PAST TWO YEARS

REACTIONS (5)
  - Cardiac tamponade [Unknown]
  - Bradycardia [Unknown]
  - Atrioventricular block second degree [Unknown]
  - Pericardial effusion [Unknown]
  - Pleural effusion [Unknown]
